FAERS Safety Report 14532021 (Version 2)
Quarter: 2020Q1

REPORT INFORMATION
  Report Type: Spontaneous
  Country: DE (occurrence: DE)
  Receive Date: 20180214
  Receipt Date: 20200122
  Transmission Date: 20200409
  Serious: Yes (Other)
  Sender: FDA-Public Use
  Company Number: PHHY2018DE023132

PATIENT
  Age: 48 Year
  Sex: Female

DRUGS (4)
  1. YARROW TCT [Concomitant]
     Indication: PRODUCT USED FOR UNKNOWN INDICATION
     Dosage: TEA
     Route: 065
  2. L-THYROXIN ^HENNING BERLIN^ [Concomitant]
     Active Substance: LEVOTHYROXINE
     Indication: PRODUCT USED FOR UNKNOWN INDICATION
     Route: 065
  3. IRON [Concomitant]
     Active Substance: IRON
     Indication: PRODUCT USED FOR UNKNOWN INDICATION
     Dosage: FROM TIME TO TIME
     Route: 065
  4. MPA 250 MG HEXAL [Suspect]
     Active Substance: MEDROXYPROGESTERONE ACETATE
     Indication: GENE MUTATION
     Dosage: 1 DF, QD
     Route: 065

REACTIONS (3)
  - Drug ineffective [Unknown]
  - Vaginal haemorrhage [Unknown]
  - Night sweats [Unknown]
